FAERS Safety Report 8425892-0 (Version None)
Quarter: 2012Q2

REPORT INFORMATION
  Report Type: 
  Country: None (occurrence: None)
  Receive Date: 20120611
  Receipt Date: 20120531
  Transmission Date: 20120825
  Serious: Yes (Hospitalization)
  Sender: FDA-Public Use
  Company Number: FR-SANOFI-AVENTIS-2012SA038675

PATIENT
  Age: 85 Year
  Sex: Female

DRUGS (5)
  1. CEFTRIAXONE [Suspect]
     Indication: ENDOCARDITIS
     Route: 042
     Dates: start: 20111202
  2. GENTAMICIN [Suspect]
     Indication: ENDOCARDITIS
     Route: 065
     Dates: end: 20111217
  3. CIPROFLOXACIN [Suspect]
     Indication: ENDOCARDITIS
     Route: 048
     Dates: start: 20111217, end: 20120102
  4. LOVENOX [Suspect]
     Route: 065
     Dates: end: 20120201
  5. ACTONEL [Suspect]
     Route: 048
     Dates: end: 20120201

REACTIONS (4)
  - DIZZINESS [None]
  - OVERDOSE [None]
  - BALANCE DISORDER [None]
  - FEELING DRUNK [None]
